FAERS Safety Report 19259380 (Version 1)
Quarter: 2021Q2

REPORT INFORMATION
  Report Type: Spontaneous
  Country: US (occurrence: US)
  Receive Date: 20210514
  Receipt Date: 20210514
  Transmission Date: 20210717
  Serious: No
  Sender: FDA-Public Use
  Company Number: US-ELI_LILLY_AND_COMPANY-US202104007786

PATIENT
  Sex: Female

DRUGS (2)
  1. EMGALITY [Suspect]
     Active Substance: GALCANEZUMAB-GNLM
     Indication: MIGRAINE
     Dosage: 120 MG, MONTHLY (1/M)
     Route: 058
     Dates: start: 202011, end: 202104
  2. DIVALPROEX [Suspect]
     Active Substance: DIVALPROEX SODIUM
     Indication: MIGRAINE
     Dosage: 250 MG, BID
     Route: 065

REACTIONS (2)
  - Platelet count increased [Unknown]
  - Blood test abnormal [Unknown]
